FAERS Safety Report 20567121 (Version 2)
Quarter: 2022Q1

REPORT INFORMATION
  Report Type: Spontaneous
  Country: DE (occurrence: DE)
  Receive Date: 20220308
  Receipt Date: 20220328
  Transmission Date: 20220423
  Serious: No
  Sender: FDA-Public Use
  Company Number: DE-PFIZER INC-202200345557

PATIENT

DRUGS (1)
  1. MEDROXYPROGESTERONE [Suspect]
     Active Substance: MEDROXYPROGESTERONE
     Dosage: 160 MG/ML 0.65 ML

REACTIONS (2)
  - Incorrect dose administered by device [Unknown]
  - Device occlusion [Unknown]
